FAERS Safety Report 17697497 (Version 6)
Quarter: 2020Q2

REPORT INFORMATION
  Report Type: Report from Study
  Country: None (occurrence: ES)
  Receive Date: 20200423
  Receipt Date: 20200523
  Transmission Date: 20200714
  Serious: Yes (Hospitalization, Other)
  Sender: FDA-Public Use
  Company Number: ES-ABBVIE-20K-144-3375261-00

PATIENT
  Age: 75 Year
  Sex: Female
  Weight: 52 kg

DRUGS (4)
  1. BOI K [Concomitant]
     Active Substance: ASCORBIC ACID\POTASSIUM BICARBONATE
     Indication: PRODUCT USED FOR UNKNOWN INDICATION
     Route: 048
  2. DUODOPA [Suspect]
     Active Substance: CARBIDOPA\LEVODOPA
     Indication: PARKINSON^S DISEASE
     Route: 050
     Dates: start: 20161201
  3. TINZAPARIN [Concomitant]
     Active Substance: TINZAPARIN
     Indication: PRODUCT USED FOR UNKNOWN INDICATION
     Dosage: 10000UI
     Route: 058
  4. SPIRONOLACTONE. [Concomitant]
     Active Substance: SPIRONOLACTONE
     Indication: PRODUCT USED FOR UNKNOWN INDICATION
     Route: 048

REACTIONS (18)
  - Pulmonary hypertension [Not Recovered/Not Resolved]
  - Dyspnoea [Recovered/Resolved]
  - Cardiomegaly [Not Recovered/Not Resolved]
  - Atelectasis [Unknown]
  - Systolic dysfunction [Not Recovered/Not Resolved]
  - Pulmonary embolism [Recovering/Resolving]
  - Swelling face [Recovered/Resolved]
  - Hypophagia [Not Recovered/Not Resolved]
  - Dilatation ventricular [Not Recovered/Not Resolved]
  - Swelling [Recovering/Resolving]
  - Peripheral swelling [Recovered/Resolved]
  - Pleural effusion [Unknown]
  - Oxygen saturation abnormal [Not Recovered/Not Resolved]
  - Respiratory failure [Recovering/Resolving]
  - Chest pain [Recovered/Resolved]
  - Liver disorder [Unknown]
  - Cardiac failure [Unknown]
  - Dilatation atrial [Not Recovered/Not Resolved]

NARRATIVE: CASE EVENT DATE: 2020
